FAERS Safety Report 5368747-0 (Version None)
Quarter: 2007Q2

REPORT INFORMATION
  Report Type: 
  Country: None (occurrence: None)
  Receive Date: 20070625
  Receipt Date: 20070523
  Transmission Date: 20071010
  Serious: No
  Sender: FDA-Public Use
  Company Number: US-BRISTOL-MYERS SQUIBB COMPANY-13789706

PATIENT
  Sex: Female
  Weight: 94 kg

DRUGS (16)
  1. ORENCIA [Suspect]
     Indication: RHEUMATOID ARTHRITIS
     Route: 042
     Dates: start: 20070402
  2. CELEBREX [Concomitant]
  3. PREDNISONE TAB [Concomitant]
  4. POTASSIUM CHLORIDE [Concomitant]
  5. AMILORIDE HYDROCHLORIDE [Concomitant]
  6. LISINOPRIL [Concomitant]
  7. FOLIC ACID [Concomitant]
  8. ACTONEL [Concomitant]
  9. PRILOSEC [Concomitant]
  10. SLOW FE [Concomitant]
  11. MULTI-VITAMIN [Concomitant]
  12. VITAMIN E [Concomitant]
  13. CALCIUM + VITAMIN D [Concomitant]
  14. ESTROVEN [Concomitant]
  15. TYLENOL EXTRA STRENGTH [Concomitant]
  16. METHOTREXATE [Concomitant]

REACTIONS (2)
  - DRUG INEFFECTIVE [None]
  - WEIGHT INCREASED [None]
